FAERS Safety Report 9357607 (Version 3)
Quarter: 2013Q3

REPORT INFORMATION
  Report Type: Report from Study
  Country: CA (occurrence: CA)
  Receive Date: 20130620
  Receipt Date: 20130923
  Transmission Date: 20140515
  Serious: Yes (Other)
  Sender: FDA-Public Use
  Company Number: CA-ROCHE-1132762

PATIENT
  Age: 53 Year
  Sex: Female
  Weight: 81.2 kg

DRUGS (14)
  1. RITUXIMAB [Suspect]
     Indication: RHEUMATOID ARTHRITIS
     Route: 042
     Dates: start: 20120912, end: 20120927
  2. ACTEMRA [Suspect]
     Indication: RHEUMATOID ARTHRITIS
     Route: 042
     Dates: start: 20130311, end: 20130603
  3. ACTEMRA [Suspect]
     Route: 042
     Dates: start: 20130408
  4. DIPHENHYDRAMINE HCL [Concomitant]
     Indication: PREMEDICATION
     Route: 042
     Dates: start: 20120912, end: 20120927
  5. ACETAMINOPHEN [Concomitant]
     Indication: PREMEDICATION
     Route: 048
     Dates: start: 20120912, end: 20120927
  6. METHYLPREDNISOLONE [Concomitant]
     Indication: PREMEDICATION
     Route: 042
     Dates: start: 20120912, end: 20120927
  7. ARAVA [Concomitant]
  8. ELTROXIN [Concomitant]
  9. AMITRIPTYLINE [Concomitant]
  10. VENTOLIN [Concomitant]
  11. ADVAIR [Concomitant]
  12. SINGULAIR [Concomitant]
  13. FISH OIL [Concomitant]
  14. ORENCIA [Concomitant]
     Route: 065
     Dates: end: 20120712

REACTIONS (7)
  - Drug ineffective [Unknown]
  - Blood cholesterol abnormal [Not Recovered/Not Resolved]
  - Ear pruritus [Recovered/Resolved]
  - Oropharyngeal pain [Recovered/Resolved]
  - Throat irritation [Recovered/Resolved]
  - Bronchitis [Recovering/Resolving]
  - Herpes zoster [Not Recovered/Not Resolved]
